FAERS Safety Report 11359483 (Version 2)
Quarter: 2015Q4

REPORT INFORMATION
  Report Type: Report from Study
  Country: IL (occurrence: IL)
  Receive Date: 20150807
  Receipt Date: 20151007
  Transmission Date: 20160304
  Serious: Yes (Death, Life-Threatening, Hospitalization, Other)
  Sender: FDA-Public Use
  Company Number: PHHY2015IL005134

PATIENT
  Age: 72 Year
  Sex: Female
  Weight: 63 kg

DRUGS (4)
  1. SANDOSTATIN LAR DEPOT [Suspect]
     Active Substance: OCTREOTIDE ACETATE
     Indication: CARCINOID TUMOUR
     Dosage: 10 MG, QMO (EVERY 4 WEEK)
     Route: 030
     Dates: start: 20100408
  2. SUTENT [Concomitant]
     Active Substance: SUNITINIB MALATE
     Indication: PRODUCT USED FOR UNKNOWN INDICATION
     Route: 065
  3. SANDOSTATIN LAR DEPOT [Suspect]
     Active Substance: OCTREOTIDE ACETATE
     Dosage: 60 MG, QMO, (EVERY 28 DAYS)
     Route: 030
  4. SANDOSTATIN LAR DEPOT [Suspect]
     Active Substance: OCTREOTIDE ACETATE
     Indication: NEUROENDOCRINE TUMOUR
     Dosage: 20 MG, QMO, (EVERY 4 WEEK)
     Route: 030

REACTIONS (17)
  - Loss of consciousness [Unknown]
  - Hypophagia [Unknown]
  - Weight decreased [Not Recovered/Not Resolved]
  - Coma [Not Recovered/Not Resolved]
  - Renal impairment [Recovered/Resolved]
  - Flatulence [Recovering/Resolving]
  - Abdominal discomfort [Unknown]
  - Vomiting [Recovered/Resolved]
  - Death [Fatal]
  - Ascites [Not Recovered/Not Resolved]
  - Intraocular pressure test abnormal [Not Recovered/Not Resolved]
  - Malaise [Unknown]
  - Abdominal mass [Not Recovered/Not Resolved]
  - Photopsia [Not Recovered/Not Resolved]
  - Abasia [Unknown]
  - Malignant neoplasm progression [Unknown]
  - Abdominal pain [Recovering/Resolving]

NARRATIVE: CASE EVENT DATE: 20150728
